FAERS Safety Report 4932568-0 (Version None)
Quarter: 2006Q1

REPORT INFORMATION
  Report Type: 
  Country: None (occurrence: None)
  Receive Date: 20060303
  Receipt Date: 20050628
  Transmission Date: 20060701
  Serious: Yes (Hospitalization, Disabling, Other)
  Sender: FDA-Public Use
  Company Number: US-MERCK-0506USA03968

PATIENT
  Sex: Female
  Weight: 66 kg

DRUGS (4)
  1. VIOXX [Suspect]
     Indication: TINNITUS
     Route: 048
     Dates: start: 19990101, end: 20021201
  2. VIOXX [Suspect]
     Route: 048
     Dates: start: 19990101, end: 20021201
  3. VIOXX [Suspect]
     Indication: CARPAL TUNNEL SYNDROME
     Route: 048
     Dates: start: 19990101, end: 20021201
  4. VIOXX [Suspect]
     Route: 048
     Dates: start: 19990101, end: 20021201

REACTIONS (7)
  - ANGINA PECTORIS [None]
  - CARPAL TUNNEL SYNDROME [None]
  - CEREBROVASCULAR ACCIDENT [None]
  - CHEST PAIN [None]
  - CORONARY ARTERY OCCLUSION [None]
  - DIVERTICULITIS [None]
  - MYOCARDIAL INFARCTION [None]
